FAERS Safety Report 17121574 (Version 1)
Quarter: 2019Q4

REPORT INFORMATION
  Report Type: Report from Study
  Country: BE (occurrence: BE)
  Receive Date: 20191206
  Receipt Date: 20191206
  Transmission Date: 20200122
  Serious: Yes (Other)
  Sender: FDA-Public Use
  Company Number: PHHY2014BE064202

PATIENT
  Age: 34 Year
  Sex: Female

DRUGS (4)
  1. GILENYA [Suspect]
     Active Substance: FINGOLIMOD HYDROCHLORIDE
     Indication: MULTIPLE SCLEROSIS
     Dosage: UNK, QD
     Route: 048
     Dates: start: 20130205, end: 20150220
  2. GILENYA [Suspect]
     Active Substance: FINGOLIMOD HYDROCHLORIDE
     Dosage: UNK, QD
     Route: 048
     Dates: start: 20150528
  3. GABAPENTIN. [Concomitant]
     Active Substance: GABAPENTIN
     Indication: PAIN
     Dosage: 600 MG, QD
     Route: 065
     Dates: start: 20160325
  4. CARBAMAZEPINE. [Concomitant]
     Active Substance: CARBAMAZEPINE
     Indication: NEURALGIA
     Dosage: 200 MG, QD
     Route: 065
     Dates: start: 20160325, end: 20160325

REACTIONS (11)
  - Alanine aminotransferase increased [Unknown]
  - Oropharyngeal pain [Recovered/Resolved]
  - Breast discomfort [Recovered/Resolved]
  - Oral herpes [Recovered/Resolved]
  - Urinary tract infection [Unknown]
  - Gamma-glutamyltransferase increased [Unknown]
  - Oral herpes [Recovered/Resolved]
  - Cough [Recovered/Resolved]
  - Oral herpes [Recovered/Resolved]
  - Blood immunoglobulin G decreased [Unknown]
  - Helicobacter infection [Recovered/Resolved]

NARRATIVE: CASE EVENT DATE: 20130329
